FAERS Safety Report 23416787 (Version 4)
Quarter: 2025Q1

REPORT INFORMATION
  Report Type: Spontaneous
  Country: US (occurrence: US)
  Receive Date: 20240118
  Receipt Date: 20250325
  Transmission Date: 20250409
  Serious: No
  Sender: PFIZER
  Company Number: US-PFIZER INC-PV202400007351

PATIENT
  Age: 68 Year
  Sex: Female

DRUGS (1)
  1. VYNDAMAX [Suspect]
     Active Substance: TAFAMIDIS
     Indication: Amyloidosis

REACTIONS (6)
  - Abdominal pain upper [Unknown]
  - Vomiting [Unknown]
  - Memory impairment [Unknown]
  - Agitation [Unknown]
  - Visual impairment [Unknown]
  - Illness [Unknown]
